FAERS Safety Report 17803732 (Version 1)
Quarter: 2020Q2

REPORT INFORMATION
  Report Type: Spontaneous
  Country: JP (occurrence: JP)
  Receive Date: 20200519
  Receipt Date: 20200519
  Transmission Date: 20200714
  Serious: Yes (Hospitalization)
  Sender: FDA-Public Use
  Company Number: JP-MYLANLABS-2020M1048405

PATIENT
  Age: 6 Decade
  Sex: Male

DRUGS (23)
  1. PARACETAMOL/TRAMADOL [Suspect]
     Active Substance: ACETAMINOPHEN\TRAMADOL
     Dosage: 2 DOSAGE FORM, QID
     Route: 048
     Dates: start: 20200328
  2. LYRICA [Suspect]
     Active Substance: PREGABALIN
     Dosage: 300 DOSAGE FORM
     Route: 048
     Dates: start: 20200325, end: 20200325
  3. GLACTIV [Suspect]
     Active Substance: SITAGLIPTIN
     Dosage: 60 DOSAGE FORM
     Route: 048
     Dates: start: 20200325, end: 20200325
  4. GLACTIV [Suspect]
     Active Substance: SITAGLIPTIN
     Dosage: 50 MILLIGRAM, QD
     Route: 048
     Dates: start: 20200328
  5. DANTRIUM [Concomitant]
     Active Substance: DANTROLENE SODIUM
     Dosage: 75 MILLIGRAM, BID
     Route: 048
     Dates: start: 20200328
  6. MAGNESIUM OXIDE. [Concomitant]
     Active Substance: MAGNESIUM OXIDE
     Indication: CONSTIPATION
     Dosage: 330 MILLIGRAM, TID
     Route: 048
     Dates: end: 20200325
  7. MAGNESIUM OXIDE. [Concomitant]
     Active Substance: MAGNESIUM OXIDE
     Dosage: 330 MILLIGRAM, TID
     Route: 048
     Dates: start: 20200328
  8. FUROSEMIDE. [Concomitant]
     Active Substance: FUROSEMIDE
     Dosage: 20 MILLIGRAM, QD
     Route: 048
     Dates: start: 20200328
  9. LYRICA [Suspect]
     Active Substance: PREGABALIN
     Dosage: 150 MILLIGRAM, BID
     Route: 048
     Dates: start: 20200328
  10. DANTRIUM [Concomitant]
     Active Substance: DANTROLENE SODIUM
     Indication: SPINAL OSTEOARTHRITIS
     Dosage: 75 MILLIGRAM, BID
     Route: 048
     Dates: end: 20200325
  11. FUROSEMIDE. [Concomitant]
     Active Substance: FUROSEMIDE
     Indication: PRODUCT USED FOR UNKNOWN INDICATION
     Dosage: 20 MILLIGRAM, QD
     Route: 048
     Dates: start: 20170303, end: 20200325
  12. MECOBALAMIN [Concomitant]
     Active Substance: METHYLCOBALAMIN
     Indication: PRODUCT USED FOR UNKNOWN INDICATION
     Dosage: 500 MILLIGRAM, TID
     Route: 048
     Dates: start: 20190426, end: 20200325
  13. MECOBALAMIN [Concomitant]
     Active Substance: METHYLCOBALAMIN
     Dosage: 500 MILLIGRAM, TID
     Route: 048
     Dates: start: 20200328
  14. PARACETAMOL/TRAMADOL [Suspect]
     Active Substance: ACETAMINOPHEN\TRAMADOL
     Indication: PAIN
     Dosage: 2 DOSAGE FORM, QID
     Route: 048
     Dates: end: 20200325
  15. METFORMIN [Concomitant]
     Active Substance: METFORMIN HYDROCHLORIDE
     Dosage: 250 MILLIGRAM, BID
     Route: 048
     Dates: start: 20200328
  16. METFORMIN [Concomitant]
     Active Substance: METFORMIN HYDROCHLORIDE
     Indication: DIABETES MELLITUS
     Dosage: 250 MILLIGRAM, BID
     Route: 048
     Dates: start: 20171010, end: 20200325
  17. FERROUS CITRATE NA [Concomitant]
     Active Substance: SODIUM FERROUS CITRATE
     Dosage: 100 MILLIGRAM, BID
     Route: 048
     Dates: start: 20200328
  18. PARACETAMOL/TRAMADOL [Suspect]
     Active Substance: ACETAMINOPHEN\TRAMADOL
     Dosage: 20 DOSAGE FORM
     Route: 048
     Dates: start: 20200325, end: 20200325
  19. LYRICA [Suspect]
     Active Substance: PREGABALIN
     Indication: HYPOAESTHESIA
     Dosage: 150 MILLIGRAM, BID
     Route: 048
     Dates: end: 20200325
  20. GLACTIV [Suspect]
     Active Substance: SITAGLIPTIN
     Indication: DIABETES MELLITUS
     Dosage: 50 MILLIGRAM, QD
     Route: 048
     Dates: start: 20171005, end: 20200325
  21. MIGLITOL. [Concomitant]
     Active Substance: MIGLITOL
     Indication: DIABETES MELLITUS
     Dosage: 25 MILLIGRAM, TID
     Route: 048
     Dates: start: 20171006, end: 20200325
  22. MIGLITOL. [Concomitant]
     Active Substance: MIGLITOL
     Dosage: 25 MILLIGRAM, TID
     Route: 048
     Dates: start: 20200328
  23. FERROUS CITRATE NA [Concomitant]
     Active Substance: SODIUM FERROUS CITRATE
     Indication: PRODUCT USED FOR UNKNOWN INDICATION
     Dosage: 100 MILLIGRAM, BID
     Route: 048
     Dates: start: 20180406, end: 20200325

REACTIONS (2)
  - Altered state of consciousness [Recovered/Resolved]
  - Intentional overdose [Unknown]

NARRATIVE: CASE EVENT DATE: 20200325
